FAERS Safety Report 17366958 (Version 2)
Quarter: 2020Q1

REPORT INFORMATION
  Report Type: Spontaneous
  Country: JP (occurrence: JP)
  Receive Date: 20200204
  Receipt Date: 20200226
  Transmission Date: 20200409
  Serious: Yes (Hospitalization, Other)
  Sender: FDA-Public Use
  Company Number: JP-EISAI MEDICAL RESEARCH-EC-2020-069295

PATIENT
  Sex: Male

DRUGS (1)
  1. LENVIMA [Suspect]
     Active Substance: LENVATINIB
     Indication: HEPATOCELLULAR CARCINOMA
     Route: 048
     Dates: start: 2019, end: 201910

REACTIONS (4)
  - Liver abscess [Recovered/Resolved]
  - Septic shock [Unknown]
  - Hepatic infarction [Unknown]
  - Pyrexia [Unknown]

NARRATIVE: CASE EVENT DATE: 201910
